FAERS Safety Report 11376445 (Version 9)
Quarter: 2015Q4

REPORT INFORMATION
  Report Type: Report from Study
  Country: CA (occurrence: CA)
  Receive Date: 20150813
  Receipt Date: 20151116
  Transmission Date: 20160304
  Serious: Yes (Other)
  Sender: FDA-Public Use
  Company Number: CA-GILEAD-2015-0163931

PATIENT
  Age: 57 Year
  Sex: Female

DRUGS (4)
  1. LEDIPASVIR/SOFOSBUVIR [Suspect]
     Active Substance: LEDIPASVIR\SOFOSBUVIR
     Indication: HEPATITIS C
     Dosage: 1 DF, UNK
     Route: 048
     Dates: start: 20150710, end: 20151011
  2. TRAZODONE [Concomitant]
     Active Substance: TRAZODONE HYDROCHLORIDE
     Indication: PRODUCT USED FOR UNKNOWN INDICATION
  3. GRAVOL [Concomitant]
     Active Substance: DIMENHYDRINATE
     Indication: PRODUCT USED FOR UNKNOWN INDICATION
     Dosage: UNK
  4. RANITIDINE [Concomitant]
     Active Substance: RANITIDINE\RANITIDINE HYDROCHLORIDE
     Indication: HYPERSENSITIVITY

REACTIONS (27)
  - Urine abnormality [Unknown]
  - Palpitations [Unknown]
  - Somnolence [Unknown]
  - Abdominal distension [Unknown]
  - Insomnia [Unknown]
  - Jaundice [Not Recovered/Not Resolved]
  - Tachycardia [Unknown]
  - Abnormal faeces [Unknown]
  - Feeling hot [Unknown]
  - Faeces soft [Unknown]
  - Generalised oedema [Unknown]
  - Breast swelling [Unknown]
  - Arrhythmia [Not Recovered/Not Resolved]
  - Hypoaesthesia [Recovered/Resolved]
  - Fatigue [Not Recovered/Not Resolved]
  - Gallbladder disorder [Recovered/Resolved]
  - Dyspnoea [Unknown]
  - Malaise [Unknown]
  - Myocardial infarction [Unknown]
  - Pyrexia [Unknown]
  - Decreased appetite [Unknown]
  - Throat irritation [Unknown]
  - Chest pain [Unknown]
  - Dry throat [Unknown]
  - Mobility decreased [Unknown]
  - Fluid retention [Not Recovered/Not Resolved]
  - Feeling abnormal [Unknown]

NARRATIVE: CASE EVENT DATE: 201507
